FAERS Safety Report 8525160-2 (Version None)
Quarter: 2012Q3

REPORT INFORMATION
  Report Type: 
  Country: None (occurrence: None)
  Receive Date: 20120720
  Receipt Date: 20120713
  Transmission Date: 20120928
  Serious: Yes (Hospitalization)
  Sender: FDA-Public Use
  Company Number: PHEH2012US010109

PATIENT
  Sex: Female

DRUGS (4)
  1. FAMPRIDINE [Concomitant]
     Indication: GAIT DISTURBANCE
     Dosage: 10 MG, Q12H
     Route: 048
     Dates: start: 20110411
  2. GILENYA [Suspect]
     Indication: MULTIPLE SCLEROSIS
     Dosage: 0.5 MG, QD
     Route: 048
     Dates: start: 20120208, end: 20120506
  3. CELEXA [Concomitant]
     Indication: DEPRESSION
     Dosage: 20 MG, QD
     Route: 048
  4. BACLOFEN [Concomitant]
     Indication: MUSCLE SPASMS
     Dosage: 10 MG, BID
     Route: 048

REACTIONS (6)
  - VOMITING [None]
  - NAUSEA [None]
  - ABDOMINAL DISCOMFORT [None]
  - COLITIS [None]
  - ABDOMINAL PAIN UPPER [None]
  - DIARRHOEA [None]
